FAERS Safety Report 25593842 (Version 2)
Quarter: 2025Q4

REPORT INFORMATION
  Report Type: Spontaneous
  Country: US (occurrence: US)
  Receive Date: 20250723
  Receipt Date: 20251019
  Transmission Date: 20260118
  Serious: No
  Sender: LUPIN
  Company Number: US-LUPIN PHARMACEUTICALS INC.-2025-06284

PATIENT
  Age: 69 Year
  Weight: 54.422 kg

DRUGS (1)
  1. LEVALBUTEROL TARTRATE [Suspect]
     Active Substance: LEVALBUTEROL TARTRATE
     Indication: Bronchiectasis
     Dosage: 2 PUFFS EVERY 4 HOURS, PRN

REACTIONS (3)
  - Product after taste [Unknown]
  - Product quality issue [Unknown]
  - Off label use [Unknown]
